FAERS Safety Report 7214933-4 (Version None)
Quarter: 2011Q1

REPORT INFORMATION
  Report Type: 
  Country: None (occurrence: None)
  Receive Date: 20110107
  Receipt Date: 20100706
  Transmission Date: 20110831
  Serious: No
  Sender: FDA-Public Use
  Company Number: A0861038A

PATIENT
  Age: 77 Year
  Sex: Female

DRUGS (5)
  1. TOPROL-XL [Concomitant]
  2. MULTIVITAMIN [Concomitant]
  3. LORAZEPAM [Concomitant]
  4. SYNTHROID [Concomitant]
  5. LOVAZA [Suspect]
     Indication: BLOOD CHOLESTEROL INCREASED
     Dosage: 4CAP PER DAY
     Route: 048
     Dates: start: 20100416, end: 20100521

REACTIONS (4)
  - ABDOMINAL DISCOMFORT [None]
  - DRY MOUTH [None]
  - MALAISE [None]
  - PALPITATIONS [None]
